FAERS Safety Report 16134952 (Version 1)
Quarter: 2019Q1

REPORT INFORMATION
  Report Type: Spontaneous
  Country: GB (occurrence: GB)
  Receive Date: 20190329
  Receipt Date: 20190329
  Transmission Date: 20190418
  Serious: Yes (Other)
  Sender: FDA-Public Use
  Company Number: GB-IBIGEN-2019.06207

PATIENT

DRUGS (1)
  1. LEFLOXIN (FLUCLOXACILLIN SODIUM). [Suspect]
     Active Substance: FLUCLOXACILLIN SODIUM MONOHYDRATE
     Dosage: THE PATIENT RECEIVED THE PRODUCT ON CONSECUTIVE DAYS.
     Route: 065

REACTIONS (3)
  - Respiratory arrest [Unknown]
  - Respiratory depression [Unknown]
  - Bronchospasm [Unknown]
